FAERS Safety Report 8884821 (Version 1)
Quarter: 2012Q4

REPORT INFORMATION
  Report Type: 
  Country: FR (occurrence: FR)
  Receive Date: 20121102
  Receipt Date: 20121102
  Transmission Date: 20130627
  Serious: Yes (Hospitalization, Other)
  Sender: FDA-Public Use
  Company Number: FR-MERCK-2012SP027074

PATIENT
  Age: 52 Year
  Sex: Female

DRUGS (10)
  1. VICTRELIS [Suspect]
     Indication: HEPATITIS C
     Dosage: 800 mg, QD
     Route: 048
     Dates: start: 20120130, end: 20120515
  2. VIRAFERONPEG [Suspect]
     Indication: HEPATITIS C
     Dosage: 100 ?g, QW
     Route: 058
     Dates: start: 20120102
  3. VIRAFERONPEG [Suspect]
     Dosage: 80 ?g, QW
     Route: 058
     Dates: start: 20120502
  4. REBETOL [Suspect]
     Indication: HEPATITIS C
     Dosage: 1000 mg, QD
     Dates: start: 20120102
  5. REBETOL [Suspect]
     Dosage: 800 mg, QD
     Dates: start: 20120502
  6. DEROXAT [Suspect]
     Indication: PRODUCT USED FOR UNKNOWN INDICATION
     Dosage: 1 DF, QD
     Route: 048
     Dates: start: 20120201, end: 20120515
  7. XANAX [Suspect]
     Indication: PRODUCT USED FOR UNKNOWN INDICATION
     Dosage: 0.50 mg, QD
     Route: 048
     Dates: start: 20120201, end: 20120515
  8. SEROPLEX [Concomitant]
     Indication: PRODUCT USED FOR UNKNOWN INDICATION
     Dates: end: 20120201
  9. URBANYL [Concomitant]
     Indication: PRODUCT USED FOR UNKNOWN INDICATION
     Dosage: DISCONTINUED ON 01FEB2012 OR BEGINNINGMAR2012
     Dates: end: 20120201
  10. IMOVANE [Concomitant]
     Indication: PRODUCT USED FOR UNKNOWN INDICATION

REACTIONS (11)
  - Dermatitis exfoliative [Recovering/Resolving]
  - Face oedema [Recovering/Resolving]
  - Lymphadenopathy [Recovering/Resolving]
  - Pyrexia [Recovering/Resolving]
  - Pruritus [Recovering/Resolving]
  - Rash [Recovering/Resolving]
  - Leukopenia [Recovering/Resolving]
  - Thrombocytopenia [Recovering/Resolving]
  - Anaemia [Recovering/Resolving]
  - Alopecia [Not Recovered/Not Resolved]
  - Drug ineffective [Unknown]
